FAERS Safety Report 5653844-2 (Version None)
Quarter: 2008Q1

REPORT INFORMATION
  Report Type: 
  Country: None (occurrence: None)
  Receive Date: 20080306
  Receipt Date: 20080226
  Transmission Date: 20080703
  Serious: Yes (Death, Life-Threatening, Hospitalization)
  Sender: FDA-Public Use
  Company Number: BE-PFIZER INC-2007041836

PATIENT
  Sex: Male
  Weight: 106 kg

DRUGS (7)
  1. MARAVIROC [Suspect]
     Indication: HIV TEST POSITIVE
     Route: 048
     Dates: start: 20060830, end: 20070831
  2. BACTRIM [Concomitant]
  3. FENOFIBRATE [Concomitant]
  4. METFORMINE ^MERCK^ [Concomitant]
  5. METOPROLOL SUCCINATE [Concomitant]
  6. INDAPAMIDE [Concomitant]
  7. CANDESARTAN CILEXETIL [Concomitant]

REACTIONS (1)
  - LUNG NEOPLASM MALIGNANT [None]
